FAERS Safety Report 5489972-4 (Version None)
Quarter: 2007Q4

REPORT INFORMATION
  Report Type: 
  Country: None (occurrence: None)
  Receive Date: 20071018
  Receipt Date: 20071010
  Transmission Date: 20080405
  Serious: Yes (Hospitalization)
  Sender: FDA-Public Use
  Company Number: US-ROCHE-524453

PATIENT
  Age: 52 Year
  Sex: Female

DRUGS (5)
  1. PEG-INTERFERON A-2A (RO 25-8310) [Suspect]
     Route: 065
     Dates: start: 20070822, end: 20070925
  2. PEG-INTERFERON A-2A (RO 25-8310) [Suspect]
     Route: 065
     Dates: start: 20071008
  3. COPEGUS [Suspect]
     Route: 065
     Dates: start: 20070822, end: 20070925
  4. COPEGUS [Suspect]
     Route: 065
     Dates: start: 20071008
  5. PAXIL [Concomitant]
     Indication: DRUG USE FOR UNKNOWN INDICATION

REACTIONS (6)
  - ASTHENIA [None]
  - FULL BLOOD COUNT ABNORMAL [None]
  - HYPOTENSION [None]
  - INSOMNIA [None]
  - PLATELET COUNT DECREASED [None]
  - VISUAL DISTURBANCE [None]
